FAERS Safety Report 4578329-6 (Version None)
Quarter: 2005Q1

REPORT INFORMATION
  Report Type: 
  Country: None (occurrence: None)
  Receive Date: 20050211
  Receipt Date: 20041125
  Transmission Date: 20050727
  Serious: Yes (Other)
  Sender: FDA-Public Use
  Company Number: 200413729JP

PATIENT
  Age: 70 Year
  Sex: Female
  Weight: 49.5 kg

DRUGS (5)
  1. KETEK [Suspect]
     Indication: BRONCHITIS
     Route: 048
     Dates: start: 20041102, end: 20041107
  2. BENET [Concomitant]
     Indication: OSTEOPOROSIS
     Route: 048
     Dates: start: 20030530
  3. MUCODYNE [Concomitant]
     Indication: BRONCHITIS
     Route: 048
     Dates: start: 20041102, end: 20041109
  4. ALLEGRA [Concomitant]
     Indication: RHINITIS
     Route: 048
     Dates: start: 20041102, end: 20041109
  5. ELCITONIN [Concomitant]
     Indication: OSTEOPOROSIS
     Route: 030
     Dates: start: 20030530

REACTIONS (3)
  - COLOUR BLINDNESS ACQUIRED [None]
  - VISUAL ACUITY REDUCED [None]
  - VITREOUS FLOATERS [None]
